FAERS Safety Report 5441437-1 (Version None)
Quarter: 2007Q3

REPORT INFORMATION
  Report Type: 
  Country: None (occurrence: None)
  Receive Date: 20070904
  Receipt Date: 20070824
  Transmission Date: 20080115
  Serious: Yes (Other)
  Sender: FDA-Public Use
  Company Number: BR-JNJFOC-20070805433

PATIENT
  Age: 10 Year
  Sex: Male
  Weight: 40 kg

DRUGS (1)
  1. HALDOL [Suspect]
     Indication: SUICIDE ATTEMPT
     Route: 048

REACTIONS (8)
  - CYANOSIS [None]
  - DYSPNOEA [None]
  - EXTRAPYRAMIDAL DISORDER [None]
  - HYPERTONIA [None]
  - INTENTIONAL OVERDOSE [None]
  - LIP OEDEMA [None]
  - SUICIDE ATTEMPT [None]
  - TONGUE OEDEMA [None]
